FAERS Safety Report 8840453 (Version 2)
Quarter: 2015Q3

REPORT INFORMATION
  Report Type: Report from Study
  Country: US (occurrence: US)
  Receive Date: 20121015
  Receipt Date: 20150824
  Transmission Date: 20151125
  Serious: Yes (Other)
  Sender: FDA-Public Use
  Company Number: US-ROCHE-1140568

PATIENT
  Sex: Female
  Weight: 24.3 kg

DRUGS (12)
  1. PROTROPIN [Suspect]
     Active Substance: SOMATREM
     Indication: HYPOTHYROIDISM
     Dosage: DILUTED WITH 2 ML
     Route: 058
     Dates: start: 1994
  2. VANCERIL [Concomitant]
     Active Substance: BECLOMETHASONE DIPROPIONATE
  3. PROTROPIN [Suspect]
     Active Substance: SOMATREM
     Indication: GROWTH HORMONE DEFICIENCY
     Route: 058
  4. PROTROPIN [Suspect]
     Active Substance: SOMATREM
     Route: 058
     Dates: end: 20001214
  5. NASACORT [Concomitant]
     Active Substance: TRIAMCINOLONE ACETONIDE
  6. NUTROPIN [Concomitant]
     Active Substance: SOMATROPIN
     Route: 058
  7. SYNTHROID [Concomitant]
     Active Substance: LEVOTHYROXINE SODIUM
     Route: 065
  8. ZYRTEC [Concomitant]
     Active Substance: CETIRIZINE HYDROCHLORIDE
  9. NUTROPIN [Concomitant]
     Active Substance: SOMATROPIN
     Route: 058
  10. SINGULAIR [Concomitant]
     Active Substance: MONTELUKAST SODIUM
  11. PROTROPIN [Suspect]
     Active Substance: SOMATREM
     Route: 058
  12. NUTROPIN [Concomitant]
     Active Substance: SOMATROPIN
     Route: 058

REACTIONS (4)
  - Increased appetite [Unknown]
  - Tonsillitis [Unknown]
  - Pharyngeal oedema [Unknown]
  - Weight increased [Unknown]
